FAERS Safety Report 5542598-6 (Version None)
Quarter: 2007Q4

REPORT INFORMATION
  Report Type: 
  Country: None (occurrence: None)
  Receive Date: 20071205
  Receipt Date: 20071205
  Transmission Date: 20080405
  Serious: Yes (Hospitalization)
  Sender: FDA-Public Use
  Company Number: None

PATIENT
  Sex: Female
  Weight: 68.4932 kg

DRUGS (1)
  1. NUVARING [Suspect]
     Indication: CONTRACEPTION
     Dosage: ONE RING Q 3 WEEKS VAGINALLY
     Route: 067
     Dates: start: 20060401, end: 20071101

REACTIONS (3)
  - ABDOMINAL PAIN [None]
  - HYPERCOAGULATION [None]
  - PORTAL VEIN THROMBOSIS [None]
